FAERS Safety Report 8094800-7 (Version None)
Quarter: 2012Q1

REPORT INFORMATION
  Report Type: 
  Country: None (occurrence: None)
  Receive Date: 20120129
  Receipt Date: 20111209
  Transmission Date: 20120608
  Serious: No
  Sender: FDA-Public Use
  Company Number: US-ABBOTT-11P-163-0882600-00

PATIENT
  Sex: Female

DRUGS (3)
  1. SUDAFED 12 HOUR [Concomitant]
     Indication: HYPERSENSITIVITY
  2. ALLEGRA [Concomitant]
     Indication: HYPERSENSITIVITY
  3. HUMIRA [Suspect]
     Indication: PRODUCT USED FOR UNKNOWN INDICATION
     Route: 058
     Dates: start: 20100701

REACTIONS (4)
  - DRY EYE [None]
  - INAPPROPRIATE SCHEDULE OF DRUG ADMINISTRATION [None]
  - ARTHRALGIA [None]
  - HYPERSENSITIVITY [None]
